FAERS Safety Report 17433432 (Version 2)
Quarter: 2020Q1

REPORT INFORMATION
  Report Type: Report from Study
  Country: ES (occurrence: ES)
  Receive Date: 20200219
  Receipt Date: 20200227
  Transmission Date: 20200409
  Serious: Yes (Hospitalization)
  Sender: FDA-Public Use
  Company Number: ES-ROCHE-2375510

PATIENT
  Age: 48 Year
  Sex: Male

DRUGS (21)
  1. ZYPREXA [Concomitant]
     Active Substance: OLANZAPINE
     Indication: PROPHYLAXIS
     Route: 048
     Dates: start: 20190717
  2. PRIMPERAN [Concomitant]
     Active Substance: METOCLOPRAMIDE HYDROCHLORIDE
     Indication: SPINAL CORD COMPRESSION
     Route: 048
     Dates: start: 20190717
  3. PREGABALINE [Concomitant]
     Active Substance: PREGABALIN
     Indication: PROPHYLAXIS
     Route: 048
     Dates: start: 20190717
  4. FORTECORTIN [DEXAMETHASONE] [Concomitant]
     Active Substance: DEXAMETHASONE
     Indication: PROPHYLAXIS
     Route: 048
     Dates: start: 20190717, end: 20190719
  5. ZYPREXA [Concomitant]
     Active Substance: OLANZAPINE
     Indication: NAUSEA
     Route: 048
     Dates: start: 20190307
  6. DUPHALAC [Concomitant]
     Active Substance: LACTULOSE
     Indication: SPINAL CORD COMPRESSION
     Dosage: TOTAL DOSE: 45 MILLILITER CM3?UNIT DOSE: 15 MILLILITER CM3
     Route: 048
     Dates: start: 20190717
  7. SEVREDOL [Concomitant]
     Active Substance: MORPHINE
     Indication: PROPHYLAXIS
     Route: 048
     Dates: start: 20190717
  8. FORTECORTIN [DEXAMETHASONE] [Concomitant]
     Active Substance: DEXAMETHASONE
     Route: 048
     Dates: start: 20190720, end: 20190722
  9. FORTECORTIN [DEXAMETHASONE] [Concomitant]
     Active Substance: DEXAMETHASONE
     Dosage: TOTAL DOSE: 2 MILLILITER CM3?UNIT DOSE: 2 MILLILITER CM3
     Route: 048
     Dates: start: 20190726, end: 20190728
  10. LYRICA [Concomitant]
     Active Substance: PREGABALIN
     Indication: BACK PAIN
     Route: 048
     Dates: start: 20190307, end: 20190507
  11. NEUPOGEN [Concomitant]
     Active Substance: FILGRASTIM
     Dosage: 30 OTHER
     Route: 042
     Dates: start: 20190806
  12. MORPHINE SULFATE. [Concomitant]
     Active Substance: MORPHINE SULFATE
     Indication: SPINAL CORD COMPRESSION
     Route: 048
     Dates: start: 20190717
  13. LORAZEPAM. [Concomitant]
     Active Substance: LORAZEPAM
     Indication: PROPHYLAXIS
     Route: 048
     Dates: start: 20190717
  14. CLEXANE [Concomitant]
     Active Substance: ENOXAPARIN SODIUM
     Indication: SPINAL CORD COMPRESSION
     Route: 058
     Dates: start: 20190717
  15. FILGRASTIM [Concomitant]
     Active Substance: FILGRASTIM
     Dosage: 30 OTHER
     Route: 042
     Dates: start: 20190806
  16. TARDYFERON [Concomitant]
     Active Substance: FERROUS SULFATE
     Indication: SPINAL CORD COMPRESSION
     Route: 048
     Dates: start: 20190717
  17. ATEZOLIZUMAB. [Suspect]
     Active Substance: ATEZOLIZUMAB
     Indication: MALIGNANT NEOPLASM OF UNKNOWN PRIMARY SITE
     Route: 042
     Dates: start: 20190624
  18. TARGIN [Concomitant]
     Active Substance: NALOXONE HYDROCHLORIDE\OXYCODONE HYDROCHLORIDE
     Route: 048
     Dates: start: 20190422, end: 20190507
  19. CLEXANE [Concomitant]
     Active Substance: ENOXAPARIN SODIUM
     Indication: PULMONARY EMBOLISM
     Route: 048
     Dates: start: 20190220
  20. TARGIN [Concomitant]
     Active Substance: NALOXONE HYDROCHLORIDE\OXYCODONE HYDROCHLORIDE
     Indication: BACK PAIN
     Route: 048
     Dates: start: 20190109, end: 20190421
  21. OMEPRAZOLE. [Concomitant]
     Active Substance: OMEPRAZOLE
     Indication: SPINAL CORD COMPRESSION
     Route: 048
     Dates: start: 20190717

REACTIONS (1)
  - Pleural effusion [Not Recovered/Not Resolved]

NARRATIVE: CASE EVENT DATE: 20190805
